FAERS Safety Report 4839435-1 (Version None)
Quarter: 2005Q4

REPORT INFORMATION
  Report Type: 
  Country: None (occurrence: None)
  Receive Date: 20051129
  Receipt Date: 20050810
  Transmission Date: 20060501
  Serious: Yes (Hospitalization, Disabling)
  Sender: FDA-Public Use
  Company Number: US-MERCK-0508USA01985

PATIENT
  Age: 69 Year
  Sex: Male
  Weight: 97 kg

DRUGS (16)
  1. PRANDIN [Concomitant]
     Route: 065
  2. TOPROL-XL [Concomitant]
     Route: 065
     Dates: start: 19990901
  3. GLUCOPHAGE [Concomitant]
     Route: 065
  4. ENALAPRIL MALEATE [Concomitant]
     Route: 065
     Dates: start: 20010115
  5. LIPITOR [Concomitant]
     Route: 065
     Dates: start: 19990101
  6. FUROSEMIDE [Concomitant]
     Route: 065
  7. OXYCODONE [Concomitant]
     Route: 065
  8. NITROQUICK [Concomitant]
     Route: 065
  9. ULTRAM [Concomitant]
     Route: 065
  10. METFORMIN [Concomitant]
     Route: 065
  11. ALLEGRA [Concomitant]
     Route: 065
  12. ACTOS [Concomitant]
     Route: 065
  13. TRAMADOL HYDROCHLORIDE [Concomitant]
     Route: 065
     Dates: start: 20020722
  14. AMARYL [Concomitant]
     Route: 065
  15. VIOXX [Suspect]
     Indication: RHEUMATOID ARTHRITIS
     Route: 048
     Dates: start: 20001103, end: 20030801
  16. INSULIN [Concomitant]
     Route: 065

REACTIONS (11)
  - CEREBROVASCULAR ACCIDENT [None]
  - CHEST PAIN [None]
  - CORONARY ARTERY DISEASE [None]
  - DEPRESSION [None]
  - GLAUCOMA [None]
  - HEART RATE IRREGULAR [None]
  - HYPERKALAEMIA [None]
  - IRITIS [None]
  - MICROALBUMINURIA [None]
  - SYNCOPE [None]
  - VITH NERVE PARALYSIS [None]
